FAERS Safety Report 8390678-2 (Version None)
Quarter: 2012Q2

REPORT INFORMATION
  Report Type: 
  Country: None (occurrence: None)
  Receive Date: 20120529
  Receipt Date: 20120522
  Transmission Date: 20120825
  Serious: Yes (Hospitalization)
  Sender: FDA-Public Use
  Company Number: PHHY2012DK044067

PATIENT
  Age: 75 Year
  Sex: Female

DRUGS (2)
  1. ASPIRIN [Concomitant]
     Dosage: 1 DF, DAILY
     Dates: start: 20070101
  2. SIMVASTATIN [Suspect]
     Indication: HYPERCHOLESTEROLAEMIA
     Dosage: 20 MG, QD
     Dates: start: 20050101, end: 20120430

REACTIONS (4)
  - LOSS OF CONSCIOUSNESS [None]
  - INSOMNIA [None]
  - AMNESIA [None]
  - DIZZINESS [None]
